FAERS Safety Report 4935664-7 (Version None)
Quarter: 2006Q1

REPORT INFORMATION
  Report Type: 
  Country: None (occurrence: None)
  Receive Date: 20060307
  Receipt Date: 20051018
  Transmission Date: 20060701
  Serious: No
  Sender: FDA-Public Use
  Company Number: US-GLAXOSMITHKLINE-A0578678A

PATIENT
  Age: 78 Year
  Sex: Male

DRUGS (5)
  1. REQUIP [Suspect]
     Indication: DRUG USE FOR UNKNOWN INDICATION
     Dosage: 1MG FOUR TIMES PER DAY
     Route: 048
     Dates: start: 20050119
  2. NYSTATIN [Concomitant]
  3. LEVAQUIN [Concomitant]
  4. AMITRIPTYLINE HCL [Concomitant]
  5. CLEOCIN [Concomitant]

REACTIONS (1)
  - WRONG TECHNIQUE IN DRUG USAGE PROCESS [None]
